FAERS Safety Report 14815321 (Version 1)
Quarter: 2018Q2

REPORT INFORMATION
  Report Type: Spontaneous
  Country: US (occurrence: US)
  Receive Date: 20180426
  Receipt Date: 20180426
  Transmission Date: 20180711
  Serious: No
  Sender: FDA-Public Use
  Company Number: US-SHIRE-US201815668

PATIENT

DRUGS (1)
  1. XIIDRA [Suspect]
     Active Substance: LIFITEGRAST
     Indication: PRODUCT USED FOR UNKNOWN INDICATION
     Dosage: UNK, 2X/DAY:BID
     Route: 047
     Dates: start: 20180423

REACTIONS (6)
  - Vision blurred [Recovered/Resolved]
  - Instillation site irritation [Unknown]
  - Instillation site reaction [Unknown]
  - Instillation site erythema [Unknown]
  - Instillation site pain [Unknown]
  - Vision blurred [Unknown]
